FAERS Safety Report 14840331 (Version 2)
Quarter: 2018Q2

REPORT INFORMATION
  Report Type: Spontaneous
  Country: JP (occurrence: JP)
  Receive Date: 20180503
  Receipt Date: 20180509
  Transmission Date: 20180711
  Serious: Yes (Other)
  Sender: FDA-Public Use
  Company Number: JP-ORION CORPORATION ORION PHARMA-ENTC2018-0150

PATIENT
  Age: 7 Decade
  Sex: Female

DRUGS (14)
  1. COMTAN [Suspect]
     Active Substance: ENTACAPONE
     Indication: THERAPEUTIC RESPONSE SHORTENED
     Dosage: ON AWAKENING, AFTER BREAKFAST AND LUNCH, AT 15:00 HRS
     Route: 048
  2. REQUIP [Concomitant]
     Active Substance: ROPINIROLE HYDROCHLORIDE
     Route: 065
  3. HIRUDOID [Concomitant]
     Active Substance: GLYCOSAMINOGLYCANS
     Route: 065
  4. TRERIEF [Concomitant]
     Active Substance: ZONISAMIDE
     Route: 065
  5. NEUPRO [Concomitant]
     Active Substance: ROTIGOTINE
     Dosage: INCLUDING POULTICE
     Route: 065
  6. STALEVO [Suspect]
     Active Substance: CARBIDOPA\ENTACAPONE\LEVODOPA
     Dosage: STRENGTH: 100/10/100 MG; 15:00 HRS
     Route: 065
  7. WYPAX [Concomitant]
     Active Substance: LORAZEPAM
     Route: 065
  8. DOPACOL [Concomitant]
     Active Substance: CARBIDOPA\LEVODOPA
     Route: 065
  9. STALEVO [Suspect]
     Active Substance: CARBIDOPA\ENTACAPONE\LEVODOPA
     Dosage: STRENGTH: 50/5/100 MG
     Route: 065
  10. COMTAN [Suspect]
     Active Substance: ENTACAPONE
     Indication: PARKINSON^S DISEASE
     Dosage: AT 15:00 AND 02:00 HRS
     Route: 048
  11. SYMMETREL [Suspect]
     Active Substance: AMANTADINE HYDROCHLORIDE
     Indication: PARKINSON^S DISEASE
     Dosage: AFTER BREAKFAST AND SUPPER
     Route: 048
  12. MENESIT [Concomitant]
     Active Substance: CARBIDOPA\LEVODOPA
     Route: 065
  13. PAXIL [Concomitant]
     Active Substance: PAROXETINE HYDROCHLORIDE
     Route: 065
  14. STALEVO [Suspect]
     Active Substance: CARBIDOPA\ENTACAPONE\LEVODOPA
     Indication: PARKINSON^S DISEASE
     Dosage: STRENGTH: 100/10/100 MG; AFTER EACH MEAL
     Route: 065

REACTIONS (10)
  - Dyskinesia [Unknown]
  - Middle insomnia [Unknown]
  - Gait disturbance [Unknown]
  - Foot deformity [Unknown]
  - Akinesia [Unknown]
  - Therapeutic response shortened [Unknown]
  - Hyperkeratosis [Unknown]
  - Constipation [Unknown]
  - Wrong technique in product usage process [Unknown]
  - On and off phenomenon [Unknown]
